FAERS Safety Report 4679192-5 (Version None)
Quarter: 2005Q2

REPORT INFORMATION
  Report Type: 
  Country: None (occurrence: None)
  Receive Date: 20050526
  Receipt Date: 20050128
  Transmission Date: 20051028
  Serious: Yes (Disabling)
  Sender: FDA-Public Use
  Company Number: WAES 0501USA04543

PATIENT
  Age: 80 Year
  Sex: Female

DRUGS (7)
  1. VYTORIN [Suspect]
     Indication: BLOOD CHOLESTEROL INCREASED
     Dosage: 10-20 MG/DAILY/PO
     Route: 048
     Dates: start: 20050107
  2. HYDRODIURIL [Concomitant]
  3. KLOR-CON [Concomitant]
  4. NORVASC [Concomitant]
  5. PRINIVIL [Concomitant]
  6. ATENOLOL [Concomitant]
  7. TRAZODONE HCL [Concomitant]

REACTIONS (1)
  - MYALGIA [None]
